FAERS Safety Report 8333771-2 (Version None)
Quarter: 2012Q2

REPORT INFORMATION
  Report Type: 
  Country: None (occurrence: None)
  Receive Date: 20120503
  Receipt Date: 20120421
  Transmission Date: 20120825
  Serious: Yes (Death, Hospitalization, Other)
  Sender: FDA-Public Use
  Company Number: HU-ELI_LILLY_AND_COMPANY-HU201204007783

PATIENT
  Age: 75 Year
  Sex: Female

DRUGS (5)
  1. VITAMIN D [Concomitant]
  2. TERIPARATIDE [Suspect]
     Dosage: 20 UG, QD
     Route: 058
     Dates: start: 20110712, end: 20111111
  3. INDOMETACINUM [Concomitant]
  4. TRAMADOL HCL [Concomitant]
  5. CITRACAL [Concomitant]
     Dosage: 200 MG, UNK

REACTIONS (3)
  - DEATH [None]
  - PNEUMONIA [None]
  - HOSPITALISATION [None]
